FAERS Safety Report 18314615 (Version 1)
Quarter: 2020Q3

REPORT INFORMATION
  Report Type: Spontaneous
  Country: US (occurrence: US)
  Receive Date: 20200925
  Receipt Date: 20200925
  Transmission Date: 20201103
  Serious: No
  Sender: FDA-Public Use
  Company Number: US-PFIZER INC-2020371274

PATIENT
  Age: 59 Year
  Sex: Male
  Weight: 131.52 kg

DRUGS (2)
  1. INLYTA [Suspect]
     Active Substance: AXITINIB
     Indication: METASTASES TO ABDOMINAL CAVITY
     Dosage: 5 MG, 2X/DAY
     Route: 048
     Dates: start: 20200908, end: 2020
  2. INLYTA [Suspect]
     Active Substance: AXITINIB
     Dosage: 5 MG, 1X/DAY
     Dates: start: 2020

REACTIONS (3)
  - Abdominal pain [Unknown]
  - Hypotension [Unknown]
  - Headache [Unknown]
